FAERS Safety Report 4551689-8 (Version None)
Quarter: 2005Q1

REPORT INFORMATION
  Report Type: 
  Country: None (occurrence: None)
  Receive Date: 20050111
  Receipt Date: 20041231
  Transmission Date: 20050727
  Serious: Yes (Other)
  Sender: FDA-Public Use
  Company Number: 2005005018

PATIENT
  Age: 19 Year
  Sex: Female
  Weight: 81.6475 kg

DRUGS (3)
  1. LINEZOLID TABLET (LINEZOLID) [Suspect]
     Indication: STAPHYLOCOCCAL INFECTION
     Dosage: 1200 MG (600 MG TWICE DAILY) ORAL
     Route: 048
     Dates: start: 20041229
  2. INSULIN LISPRO (INSULIN LISPRO) [Concomitant]
  3. CLONIDINE [Concomitant]

REACTIONS (1)
  - BLOOD GLUCOSE INCREASED [None]
